FAERS Safety Report 23665666 (Version 3)
Quarter: 2024Q2

REPORT INFORMATION
  Report Type: Spontaneous
  Country: CA (occurrence: CA)
  Receive Date: 20240323
  Receipt Date: 20240517
  Transmission Date: 20240715
  Serious: Yes (Hospitalization)
  Sender: FDA-Public Use
  Company Number: CA-CELLTRION INC.-2024CA007075

PATIENT

DRUGS (3)
  1. INFLECTRA [Suspect]
     Active Substance: INFLIXIMAB-DYYB
     Indication: Colitis ulcerative
     Dosage: 300 MG,  0, 2, 6, THEN EVERY 8 WEEKS
     Route: 042
     Dates: start: 20240111
  2. INFLECTRA [Suspect]
     Active Substance: INFLIXIMAB-DYYB
     Dosage: 10 MG/KG, EVERY 4 WEEKS
     Route: 042
     Dates: start: 20240315
  3. PREDNISONE [Concomitant]
     Active Substance: PREDNISONE
     Dosage: UNK

REACTIONS (6)
  - Condition aggravated [Unknown]
  - Infection [Unknown]
  - Rectal polyp [Unknown]
  - Pyrexia [Unknown]
  - Hypotension [Unknown]
  - Off label use [Unknown]

NARRATIVE: CASE EVENT DATE: 20240315
